FAERS Safety Report 9403618 (Version 2)
Quarter: 2013Q3

REPORT INFORMATION
  Report Type: Report from Study
  Country: CA (occurrence: CA)
  Receive Date: 20130717
  Receipt Date: 20130801
  Transmission Date: 20140515
  Serious: Yes (Other)
  Sender: FDA-Public Use
  Company Number: CA-ROCHE-1186470

PATIENT
  Age: 52 Year
  Sex: Female
  Weight: 112 kg

DRUGS (13)
  1. ACTEMRA [Suspect]
     Indication: RHEUMATOID ARTHRITIS
     Route: 042
     Dates: start: 20130104
  2. ACTEMRA [Suspect]
     Route: 042
     Dates: start: 20130130
  3. ACTEMRA [Suspect]
     Route: 042
     Dates: start: 20130313
  4. HYDROCHLOROTHIAZIDE [Concomitant]
  5. NEXIUM [Concomitant]
  6. AMLODIPINE [Concomitant]
  7. MAVIK [Concomitant]
  8. ATORVASTATIN [Concomitant]
  9. MELOXICAM [Concomitant]
  10. FOLIC ACID [Concomitant]
  11. METHOTREXATE [Concomitant]
     Route: 058
  12. VALTREX [Concomitant]
  13. CYMBALTA [Concomitant]

REACTIONS (5)
  - Weight increased [Not Recovered/Not Resolved]
  - Haemorrhage [Recovered/Resolved]
  - Hepatic enzyme increased [Not Recovered/Not Resolved]
  - Conjunctivitis [Not Recovered/Not Resolved]
  - Nasopharyngitis [Recovered/Resolved]
